FAERS Safety Report 19707065 (Version 1)
Quarter: 2021Q3

REPORT INFORMATION
  Report Type: Spontaneous
  Country: US (occurrence: US)
  Receive Date: 20210817
  Receipt Date: 20210817
  Transmission Date: 20211014
  Serious: Yes (Hospitalization, Other)
  Sender: FDA-Public Use
  Company Number: US-FRESENIUS KABI-FK202108488

PATIENT
  Age: 49 Year
  Sex: Male

DRUGS (4)
  1. CISPLATIN (MANUFACTURER UNKNOWN) [Suspect]
     Active Substance: CISPLATIN
     Indication: NASAL SINUS CANCER
     Dosage: THREE CYCLES OF INDUCTION CHEMOTHERAPY
     Route: 065
  2. CARBOPLATIN (MANUFACTURER UNKNOWN) [Suspect]
     Active Substance: CARBOPLATIN
     Indication: NASAL SINUS CANCER
     Dosage: CARBOPLATIN/ETOPOSIDE; CYCLE 4 DAY 10
     Route: 065
  3. ETOPOSIDE (MANUFACTURER UNKNOWN) [Suspect]
     Active Substance: ETOPOSIDE
     Dosage: CARBOPLATIN/ETOPOSIDE; CYCLE 4 DAY 10
     Route: 065
  4. ETOPOSIDE (MANUFACTURER UNKNOWN) [Suspect]
     Active Substance: ETOPOSIDE
     Indication: NASAL SINUS CANCER
     Dosage: THREE CYCLES OF INDUCTION CHEMOTHERAPY
     Route: 065

REACTIONS (3)
  - Pharyngeal inflammation [Unknown]
  - Stomatitis [Unknown]
  - Mucosal inflammation [Unknown]
